FAERS Safety Report 8412541-0 (Version None)
Quarter: 2012Q2

REPORT INFORMATION
  Report Type: 
  Country: None (occurrence: None)
  Receive Date: 20120605
  Receipt Date: 20120521
  Transmission Date: 20120825
  Serious: No
  Sender: FDA-Public Use
  Company Number: US-AMGEN-USASP2012031721

PATIENT
  Age: 44 Year
  Sex: Female

DRUGS (1)
  1. ENBREL [Suspect]
     Indication: RHEUMATOID ARTHRITIS
     Dosage: 25 MG, 2 TIMES/WK
     Dates: start: 20070419

REACTIONS (11)
  - DEPRESSED MOOD [None]
  - DYSMENORRHOEA [None]
  - IRRITABILITY [None]
  - MUSCLE TWITCHING [None]
  - INJECTION SITE HAEMATOMA [None]
  - INJECTION SITE PAIN [None]
  - INSOMNIA [None]
  - INJECTION SITE PRURITUS [None]
  - MENSTRUAL DISORDER [None]
  - MUSCLE SPASMS [None]
  - RHEUMATOID ARTHRITIS [None]
